FAERS Safety Report 9790566 (Version 2)
Quarter: 2014Q1

REPORT INFORMATION
  Report Type: Spontaneous
  Country: US (occurrence: US)
  Receive Date: 20131231
  Receipt Date: 20140117
  Transmission Date: 20141002
  Serious: Yes (Hospitalization)
  Sender: FDA-Public Use
  Company Number: US-B.I. PHARMACEUTICALS,INC./RIDGEFIELD-2013-BI-43799BP

PATIENT
  Age: 60 Year
  Sex: Female
  Weight: 109 kg

DRUGS (2)
  1. PRADAXA [Suspect]
     Indication: ATRIAL FIBRILLATION
     Dosage: 300 MG
     Route: 048
     Dates: start: 201307
  2. TRAMADOL [Concomitant]
     Indication: ARTHRITIS
     Route: 048

REACTIONS (3)
  - Atrial fibrillation [Recovered/Resolved]
  - Gingival bleeding [Not Recovered/Not Resolved]
  - Abdominal discomfort [Not Recovered/Not Resolved]
